FAERS Safety Report 5390612-3 (Version None)
Quarter: 2007Q3

REPORT INFORMATION
  Report Type: 
  Country: None (occurrence: None)
  Receive Date: 20070718
  Receipt Date: 20070703
  Transmission Date: 20080115
  Serious: Yes (Hospitalization, Other)
  Sender: FDA-Public Use
  Company Number: JP-PFIZER INC-2007056517

PATIENT
  Age: 69 Year

DRUGS (2)
  1. MIGLITOL TABLET [Suspect]
     Indication: DIABETES MELLITUS
     Dosage: DAILY DOSE:150MG
     Route: 048
  2. TICLOPIDINE HCL [Concomitant]
     Route: 048

REACTIONS (4)
  - ANAEMIA [None]
  - GASTROINTESTINAL HAEMORRHAGE [None]
  - PALLOR [None]
  - SMALL INTESTINAL HAEMORRHAGE [None]
